FAERS Safety Report 12305152 (Version 1)
Quarter: 2016Q2

REPORT INFORMATION
  Report Type: Spontaneous
  Country: US (occurrence: US)
  Receive Date: 20160426
  Receipt Date: 20160426
  Transmission Date: 20160815
  Serious: No
  Sender: FDA-Public Use
  Company Number: US-ASTRAZENECA-2016SE31510

PATIENT
  Sex: Female
  Weight: 85.3 kg

DRUGS (1)
  1. BYDUREON [Suspect]
     Active Substance: EXENATIDE
     Indication: TYPE 2 DIABETES MELLITUS
     Route: 058
     Dates: start: 201602

REACTIONS (3)
  - Injection site pain [Recovering/Resolving]
  - Product compounding quality issue [Unknown]
  - Injection site nodule [Recovering/Resolving]
